FAERS Safety Report 24167144 (Version 1)
Quarter: 2024Q3

REPORT INFORMATION
  Report Type: Spontaneous
  Country: ES (occurrence: ES)
  Receive Date: 20240802
  Receipt Date: 20240802
  Transmission Date: 20241016
  Serious: Yes (Life-Threatening, Hospitalization)
  Sender: PFIZER
  Company Number: None

PATIENT
  Age: 17 Year
  Sex: Male
  Weight: 52.9 kg

DRUGS (2)
  1. SOMATROPIN [Suspect]
     Active Substance: SOMATROPIN
     Indication: Growth hormone deficiency
     Dosage: 0.03 MG/KG, DAILY
     Route: 058
     Dates: start: 201709, end: 20240206
  2. AMOXICILLIN [Concomitant]
     Active Substance: AMOXICILLIN
     Indication: Odynophagia
     Dosage: 1 DF, 3X/DAY
     Route: 048
     Dates: start: 20240531, end: 20240605

REACTIONS (1)
  - B-cell type acute leukaemia [Unknown]

NARRATIVE: CASE EVENT DATE: 20240707
